FAERS Safety Report 12643404 (Version 1)
Quarter: 2016Q3

REPORT INFORMATION
  Report Type: Spontaneous
  Country: FR (occurrence: FR)
  Receive Date: 20160811
  Receipt Date: 20160811
  Transmission Date: 20161109
  Serious: Yes (Other)
  Sender: FDA-Public Use
  Company Number: FR-ROCHE-1811099

PATIENT
  Age: 15 Year
  Sex: Female

DRUGS (2)
  1. XOLAIR [Suspect]
     Active Substance: OMALIZUMAB
     Indication: ASTHMA
     Dosage: 40 MG, (600 MG, 1 IN 15 DAYS)
     Route: 058
     Dates: start: 201202, end: 201208
  2. SERETIDE [Concomitant]
     Active Substance: FLUTICASONE PROPIONATE\SALMETEROL XINAFOATE
     Indication: ASTHMA
     Dosage: 2 DF, QD  (1 DF, 2 IN 1 DAY)
     Route: 055
     Dates: start: 2010

REACTIONS (3)
  - Myalgia [Recovered/Resolved]
  - Asthenia [Recovered/Resolved]
  - Bronchospasm [Recovered/Resolved]

NARRATIVE: CASE EVENT DATE: 201202
